FAERS Safety Report 9467109 (Version 1)
Quarter: 2013Q3

REPORT INFORMATION
  Report Type: Spontaneous
  Country: US (occurrence: US)
  Receive Date: 20130820
  Receipt Date: 20130820
  Transmission Date: 20140515
  Serious: No
  Sender: FDA-Public Use
  Company Number: US-CUBIST PHARMACEUTICAL, INC.-2011US000105

PATIENT
  Age: 66 Year
  Sex: Male
  Weight: 99 kg

DRUGS (5)
  1. ENTEREG [Suspect]
     Indication: POSTOPERATIVE ILEUS
     Dosage: 12 MG, UNK
     Route: 048
     Dates: start: 20111129
  2. FLOMAX [Concomitant]
     Dosage: UNK UNK, UNK
  3. PROTONIX [Concomitant]
     Dosage: UNK UNK, UNK
  4. KEPPRA [Concomitant]
     Dosage: UNK UNK, UNK
  5. MORPHINE [Concomitant]
     Dosage: UNK UNK, UNK

REACTIONS (1)
  - Thrombocytopenia [Not Recovered/Not Resolved]
